FAERS Safety Report 5309270-9 (Version None)
Quarter: 2007Q1

REPORT INFORMATION
  Report Type: 
  Country: None (occurrence: None)
  Receive Date: 20070201
  Receipt Date: 20061229
  Transmission Date: 20070707
  Serious: No
  Sender: FDA-Public Use
  Company Number: 2007PV027606

PATIENT
  Age: 79 Year
  Sex: Female

DRUGS (4)
  1. BYETTA [Suspect]
     Indication: DIABETES MELLITUS NON-INSULIN-DEPENDENT
     Dosage: 5 MCG; BID; SC
     Route: 058
     Dates: start: 20060301, end: 20060301
  2. GLIPIZIDE [Concomitant]
  3. AVANDIA [Concomitant]
  4. ACTOS [Concomitant]

REACTIONS (1)
  - MUSCULAR WEAKNESS [None]
